FAERS Safety Report 9671509 (Version 2)
Quarter: 2014Q1

REPORT INFORMATION
  Report Type: Spontaneous
  Country: US (occurrence: US)
  Receive Date: 20131106
  Receipt Date: 20140106
  Transmission Date: 20141002
  Serious: Yes (Death, Congenital Anomaly)
  Sender: FDA-Public Use
  Company Number: US-NOVOPROD-391420

PATIENT
  Sex: 0

DRUGS (2)
  1. VICTOZA [Suspect]
     Indication: GLUCOSE TOLERANCE IMPAIRED
     Dosage: 0.6 MG QD
     Route: 064
     Dates: start: 20130501, end: 20130506
  2. VICTOZA [Suspect]
     Indication: WEIGHT DECREASED
     Dosage: 1.2 MG QD
     Route: 064
     Dates: start: 20130507, end: 20130531

REACTIONS (2)
  - Congenital brain damage [Fatal]
  - Foetal exposure during pregnancy [Recovered/Resolved]
